FAERS Safety Report 21735186 (Version 2)
Quarter: 2022Q4

REPORT INFORMATION
  Report Type: Spontaneous
  Country: ES (occurrence: ES)
  Receive Date: 20221215
  Receipt Date: 20221227
  Transmission Date: 20230113
  Serious: Yes (Life-Threatening, Hospitalization)
  Sender: FDA-Public Use
  Company Number: ES-TEVA-2022-ES-2835099

PATIENT
  Age: 32 Year
  Sex: Female
  Weight: 130 kg

DRUGS (13)
  1. MYCOPHENOLATE MOFETIL [Suspect]
     Active Substance: MYCOPHENOLATE MOFETIL
     Indication: Susac^s syndrome
     Dosage: 2000 MILLIGRAM DAILY;
     Route: 065
     Dates: start: 202001
  2. HYDROXYCHLOROQUINE [Suspect]
     Active Substance: HYDROXYCHLOROQUINE
     Indication: COVID-19
     Dosage: 800 MILLIGRAM DAILY; FOR THE FIRST 24 HOURS
     Route: 065
  3. HYDROXYCHLOROQUINE [Suspect]
     Active Substance: HYDROXYCHLOROQUINE
     Dosage: 400 MILLIGRAM DAILY; MAINTAINED DOSE AFTER THE FIRST 24 HOURS
     Route: 065
  4. RITUXIMAB [Suspect]
     Active Substance: RITUXIMAB
     Indication: Susac^s syndrome
     Dosage: 1000 MG , TWO DOSES ON 11 JANUARY 2020 AND 25 JANUARY 2020 , ADDITIONAL INFO: ACTION TAKEN: THERAPY
     Route: 065
     Dates: start: 202001
  5. PREDNISONE [Suspect]
     Active Substance: PREDNISONE
     Indication: Susac^s syndrome
     Dosage: 1 MG/KG DAILY; ADDITIONAL INFO: ACTION TAKEN: THERAPY MAINTAINED UNCHANGED
     Route: 048
     Dates: start: 202001
  6. PREDNISONE [Suspect]
     Active Substance: PREDNISONE
     Dosage: 80 MILLIGRAM DAILY;
     Route: 048
  7. CYCLOPHOSPHAMIDE [Suspect]
     Active Substance: CYCLOPHOSPHAMIDE
     Indication: Susac^s syndrome
     Dosage: 1300MG (10 MG/KG)
     Route: 065
     Dates: start: 20200305
  8. LOPINAVIR\RITONAVIR [Suspect]
     Active Substance: LOPINAVIR\RITONAVIR
     Indication: COVID-19
     Dosage: 4 DOSAGE FORMS DAILY; 200/50MG TWO PILLS EVERY 12H
     Route: 065
  9. OMEPRAZOLE [Concomitant]
     Active Substance: OMEPRAZOLE
     Indication: Product used for unknown indication
     Dosage: 20 MILLIGRAM DAILY;
     Route: 065
     Dates: start: 2020
  10. CALCIUM CARBONATE\CHOLECALCIFEROL [Concomitant]
     Active Substance: CALCIUM CARBONATE\CHOLECALCIFEROL
     Indication: Product used for unknown indication
     Dosage: 1 DOSAGE FORMS DAILY;
     Route: 065
     Dates: start: 2020
  11. CALCIFEDIOL [Concomitant]
     Active Substance: CALCIFEDIOL
     Indication: Product used for unknown indication
     Dosage: 0,266 MG
     Route: 065
     Dates: start: 2020
  12. SULFAMETHOXAZOLE\TRIMETHOPRIM [Concomitant]
     Active Substance: SULFAMETHOXAZOLE\TRIMETHOPRIM
     Indication: Product used for unknown indication
     Dosage: 1 DOSAGE FORMS DAILY; TRIMETHOPRIM/SULFAMETHOXAZOLE 160/800 MG; PILLS
     Route: 065
     Dates: start: 2020
  13. Immunoglobulin [Concomitant]
     Indication: Susac^s syndrome
     Dosage: 0.4 G/KG/DAY/5DAYS
     Route: 042
     Dates: start: 202001

REACTIONS (2)
  - COVID-19 [Recovering/Resolving]
  - Off label use [Unknown]
